FAERS Safety Report 6492291-0 (Version None)
Quarter: 2009Q4

REPORT INFORMATION
  Report Type: 
  Country: None (occurrence: None)
  Receive Date: 20091214
  Receipt Date: 20091208
  Transmission Date: 20100525
  Serious: Yes (Death)
  Sender: FDA-Public Use
  Company Number: JP-ASTRAZENECA-2009SE16031

PATIENT
  Age: 19 Day
  Sex: Male
  Weight: 0.7 kg

DRUGS (10)
  1. MEROPEN [Suspect]
     Indication: PYREXIA
     Route: 041
     Dates: start: 20090910, end: 20090918
  2. MEROPEN [Suspect]
     Indication: PERITONITIS
     Route: 041
     Dates: start: 20090910, end: 20090918
  3. MEROPEN [Suspect]
     Route: 041
     Dates: start: 20090918, end: 20090920
  4. MEROPEN [Suspect]
     Route: 041
     Dates: start: 20090918, end: 20090920
  5. MEROPEN [Suspect]
     Route: 041
     Dates: start: 20090921, end: 20090922
  6. MEROPEN [Suspect]
     Route: 041
     Dates: start: 20090921, end: 20090922
  7. AMBISOME [Suspect]
     Indication: PERITONITIS
     Route: 041
     Dates: start: 20090914, end: 20090922
  8. VANCOMYCIN [Concomitant]
  9. FUNGUARD [Concomitant]
  10. HYDROCHLORIDE [Concomitant]

REACTIONS (2)
  - MULTI-ORGAN FAILURE [None]
  - RENAL FAILURE [None]
